FAERS Safety Report 18901070 (Version 1)
Quarter: 2021Q1

REPORT INFORMATION
  Report Type: Spontaneous
  Country: US (occurrence: US)
  Receive Date: 20210216
  Receipt Date: 20210216
  Transmission Date: 20210420
  Serious: Yes (Other)
  Sender: FDA-Public Use
  Company Number: US-BIOMARINAP-US-2021-134950

PATIENT
  Age: 10 Year

DRUGS (1)
  1. NAGLAZYME [Suspect]
     Active Substance: GALSULFASE
     Indication: MUCOPOLYSACCHARIDOSIS VI
     Route: 065

REACTIONS (4)
  - Cardiac valve disease [Unknown]
  - Lung disorder [Unknown]
  - Deafness transitory [Unknown]
  - Ear infection [Unknown]
